FAERS Safety Report 6165968-4 (Version None)
Quarter: 2009Q2

REPORT INFORMATION
  Report Type: 
  Country: None (occurrence: None)
  Receive Date: 20090422
  Receipt Date: 20090416
  Transmission Date: 20091009
  Serious: Yes (Other)
  Sender: FDA-Public Use
  Company Number: SPV1-2009-00726

PATIENT
  Age: 39 Year
  Sex: Female

DRUGS (1)
  1. VYVANSE [Suspect]
     Indication: ATTENTION DEFICIT/HYPERACTIVITY DISORDER
     Dosage: 40 MG

REACTIONS (2)
  - BLOOD PRESSURE INCREASED [None]
  - CEREBROVASCULAR ACCIDENT [None]
